FAERS Safety Report 15853645 (Version 1)
Quarter: 2019Q1

REPORT INFORMATION
  Report Type: Spontaneous
  Country: US (occurrence: US)
  Receive Date: 20190122
  Receipt Date: 20190122
  Transmission Date: 20190417
  Serious: No
  Sender: FDA-Public Use
  Company Number: US-LEXICON PHARMACEUTICALS, INC-19-1606-00001

PATIENT
  Sex: Female

DRUGS (6)
  1. SOMATULINE [Concomitant]
     Active Substance: LANREOTIDE ACETATE
  2. LETROZOLE. [Concomitant]
     Active Substance: LETROZOLE
  3. ATIVAN [Concomitant]
     Active Substance: LORAZEPAM
  4. TOPAMAX [Concomitant]
     Active Substance: TOPIRAMATE
  5. TELOTRISTAT ETHYL [Suspect]
     Active Substance: TELOTRISTAT ETHYL
     Indication: CARCINOID TUMOUR OF THE SMALL BOWEL
     Route: 048
     Dates: start: 20180901
  6. BUPROPION. [Concomitant]
     Active Substance: BUPROPION

REACTIONS (1)
  - Off label use [Unknown]
